FAERS Safety Report 14756767 (Version 1)
Quarter: 2018Q2

REPORT INFORMATION
  Report Type: Spontaneous
  Country: US (occurrence: US)
  Receive Date: 20180413
  Receipt Date: 20180413
  Transmission Date: 20180711
  Serious: No
  Sender: FDA-Public Use
  Company Number: US-BION-006526

PATIENT
  Age: 48 Year
  Sex: Female
  Weight: 95 kg

DRUGS (4)
  1. ERGOCALCIFEROL. [Concomitant]
     Active Substance: ERGOCALCIFEROL
  2. ALEVE [Suspect]
     Active Substance: NAPROXEN SODIUM
     Indication: BACK PAIN
     Dosage: APPROXIMATELY ONCE EVERY 2 WEEKS
     Route: 048
  3. TOCOPHEROL [Concomitant]
     Active Substance: TOCOPHEROL
  4. LYSINE [Concomitant]
     Active Substance: LYSINE

REACTIONS (4)
  - Product taste abnormal [Unknown]
  - Poor quality drug administered [Not Recovered/Not Resolved]
  - Product physical consistency issue [Unknown]
  - Expired product administered [Not Recovered/Not Resolved]
